FAERS Safety Report 25627252 (Version 1)
Quarter: 2025Q3

REPORT INFORMATION
  Report Type: Spontaneous
  Country: US (occurrence: None)
  Receive Date: 20250730
  Receipt Date: 20250730
  Transmission Date: 20251020
  Serious: Yes (Disabling, Other)
  Sender: FDA-CTU
  Company Number: None

PATIENT
  Age: 44 Year
  Sex: Female
  Weight: 103.14 kg

DRUGS (14)
  1. COSENTYX [Suspect]
     Active Substance: SECUKINUMAB
     Indication: Hidradenitis
     Dosage: OTHER QUANTITY : 2 INJECTION(S);?OTHER FREQUENCY : TWICE A MONTH;?STRENGTH: 300MG/2ML (150 MG/ML) SUBCUTANEO MG MILLIGRAM(S)
     Route: 058
     Dates: start: 20240208, end: 20241114
  2. PREDNISONE [Concomitant]
     Active Substance: PREDNISONE
  3. doxycycline hyclate 100 mg capsule [Concomitant]
  4. modafinil 200 mg tablet, [Concomitant]
  5. Spironolactone 100 mg tablet [Concomitant]
  6. TOPIRAMATE [Concomitant]
     Active Substance: TOPIRAMATE
  7. azelastine 137 mcg (0.1 %) nasal spray [Concomitant]
  8. clindamycin 1 % lotion [Concomitant]
  9. omeprazole 40 mg capsule delayed release [Concomitant]
  10. PHENTERMINE [Concomitant]
     Active Substance: PHENTERMINE
  11. Vitamin D3 50 mcg (2,000 unit) capsule [Concomitant]
  12. Vitamin C 1000 mg tablet [Concomitant]
  13. Vitamin B12 5,000 unit [Concomitant]
  14. ZYRTEC [Concomitant]
     Active Substance: CETIRIZINE HYDROCHLORIDE

REACTIONS (8)
  - Sinusitis [None]
  - Cyst [None]
  - Impaired quality of life [None]
  - Loss of employment [None]
  - Mobility decreased [None]
  - Hidradenitis [None]
  - Condition aggravated [None]
  - Sinus disorder [None]

NARRATIVE: CASE EVENT DATE: 20241102
